FAERS Safety Report 5450043-4 (Version None)
Quarter: 2007Q3

REPORT INFORMATION
  Report Type: 
  Country: None (occurrence: None)
  Receive Date: 20070912
  Receipt Date: 20070905
  Transmission Date: 20080115
  Serious: Yes (Other)
  Sender: FDA-Public Use
  Company Number: TR-AVENTIS-200718195GDDC

PATIENT
  Age: 67 Year
  Sex: Female
  Weight: 34 kg

DRUGS (6)
  1. LANTUS [Suspect]
     Route: 058
     Dates: start: 20070105
  2. AUTOPEN INSULIN INJECTION PEN [Suspect]
     Route: 058
  3. AMLOVAS [Concomitant]
     Indication: HYPERTENSION
     Dosage: DOSE QUANTITY: 2
     Route: 048
     Dates: start: 20000101
  4. ATACAND [Concomitant]
     Indication: HYPERTENSION
     Dosage: DOSE QUANTITY: 2
     Route: 048
     Dates: start: 20000101
  5. TROMBOLIZ [Concomitant]
     Dosage: DOSE QUANTITY: 3
     Route: 048
     Dates: start: 20000101
  6. LANSOR [Concomitant]
     Route: 048
     Dates: start: 20000101

REACTIONS (1)
  - WEIGHT DECREASED [None]
